FAERS Safety Report 7301525-1 (Version None)
Quarter: 2011Q1

REPORT INFORMATION
  Report Type: 
  Country: None (occurrence: None)
  Receive Date: 20110218
  Receipt Date: 20101130
  Transmission Date: 20110831
  Serious: Yes (Hospitalization)
  Sender: FDA-Public Use
  Company Number: US-BRISTOL-MYERS SQUIBB COMPANY-15414584

PATIENT
  Sex: Female

DRUGS (4)
  1. KENALOG-10 [Suspect]
     Dosage: 1 DF = 1/2 CC
     Route: 014
  2. MARCAINE [Suspect]
     Dosage: 1 DF = 1/2CC
     Route: 014
  3. DEXAMETHASONE [Suspect]
     Dosage: 1 DF = 1/2CC
     Route: 014
  4. LIDOCAINE [Suspect]
     Dosage: 1 DF = 1/2CC
     Route: 014

REACTIONS (1)
  - INJECTION SITE ABSCESS [None]
